FAERS Safety Report 19398798 (Version 2)
Quarter: 2021Q2

REPORT INFORMATION
  Report Type: Spontaneous
  Country: FI (occurrence: FI)
  Receive Date: 20210610
  Receipt Date: 20210628
  Transmission Date: 20210717
  Serious: Yes (Hospitalization, Other)
  Sender: FDA-Public Use
  Company Number: FI-GLAXOSMITHKLINE-FI2021124477

PATIENT
  Age: 32 Year
  Sex: Female

DRUGS (1)
  1. VOXRA [Suspect]
     Active Substance: BUPROPION HYDROCHLORIDE
     Indication: DEPRESSION
     Dosage: 150 MG, QD (150,MG,DAILY)
     Route: 048
     Dates: start: 20210506, end: 20210525

REACTIONS (7)
  - Normocytic anaemia [Unknown]
  - Reticulocyte count decreased [Not Recovered/Not Resolved]
  - Erythroid maturation arrest [Not Recovered/Not Resolved]
  - Aplasia pure red cell [Not Recovered/Not Resolved]
  - Haemoglobin decreased [Not Recovered/Not Resolved]
  - Red blood cell count decreased [Not Recovered/Not Resolved]
  - Erythropoiesis abnormal [Unknown]

NARRATIVE: CASE EVENT DATE: 20210521
